FAERS Safety Report 21112023 (Version 6)
Quarter: 2023Q2

REPORT INFORMATION
  Report Type: Report from Study
  Country: GT (occurrence: GT)
  Receive Date: 20220721
  Receipt Date: 20230608
  Transmission Date: 20230722
  Serious: Yes (Hospitalization, Other)
  Sender: FDA-Public Use
  Company Number: GT-NOVARTISPH-NVSC2022GT161657

PATIENT
  Age: 77 Year
  Sex: Male

DRUGS (5)
  1. SECUKINUMAB [Suspect]
     Active Substance: SECUKINUMAB
     Indication: Psoriatic arthropathy
     Dosage: 150 MG, QMO (MG/KG)
     Route: 058
     Dates: start: 202203
  2. SECUKINUMAB [Suspect]
     Active Substance: SECUKINUMAB
     Dosage: 150 MG, QMO
     Route: 058
     Dates: start: 20220419
  3. SECUKINUMAB [Suspect]
     Active Substance: SECUKINUMAB
     Dosage: 150 MG, QMO
     Route: 058
     Dates: start: 202205
  4. SECUKINUMAB [Suspect]
     Active Substance: SECUKINUMAB
     Dosage: 150 MG, QMO
     Route: 058
     Dates: start: 2022
  5. SECUKINUMAB [Suspect]
     Active Substance: SECUKINUMAB
     Dosage: 75 MG, QMO
     Route: 058

REACTIONS (7)
  - Prostatic disorder [Not Recovered/Not Resolved]
  - Chronic kidney disease [Unknown]
  - Bacterial prostatitis [Unknown]
  - Nocturia [Unknown]
  - Influenza [Unknown]
  - Illness [Unknown]
  - Incorrect dose administered [Unknown]

NARRATIVE: CASE EVENT DATE: 20230124
